FAERS Safety Report 5506246-3 (Version None)
Quarter: 2007Q4

REPORT INFORMATION
  Report Type: 
  Country: None (occurrence: None)
  Receive Date: 20071025
  Receipt Date: 20071025
  Transmission Date: 20080405
  Serious: Yes (Other)
  Sender: FDA-Public Use
  Company Number: None

PATIENT
  Age: 48 Year
  Sex: Female
  Weight: 70.7611 kg

DRUGS (1)
  1. SIMILISAN HOMEOPATHIC PINK 10ML/0.33 FL GM SIMILSAN CORP. 800-240-9780 [Suspect]
     Indication: INFLAMMATION OF LACRIMAL PASSAGE
     Dosage: 2 DROPS IN EYE
     Dates: start: 20071023, end: 20071023

REACTIONS (1)
  - CONJUNCTIVITIS INFECTIVE [None]
